FAERS Safety Report 8389960-4 (Version None)
Quarter: 2012Q2

REPORT INFORMATION
  Report Type: 
  Country: None (occurrence: None)
  Receive Date: 20120529
  Receipt Date: 20120524
  Transmission Date: 20120825
  Serious: No
  Sender: FDA-Public Use
  Company Number: US-PFIZER INC-2012098542

PATIENT
  Age: 77 Year
  Sex: Female

DRUGS (2)
  1. NEXIUM [Suspect]
     Dosage: UNK
     Route: 048
     Dates: start: 20120101
  2. CELEBREX [Suspect]
     Dosage: 200 MG, DAILY
     Route: 048
     Dates: start: 20120101

REACTIONS (2)
  - DRUG ADMINISTRATION ERROR [None]
  - DIARRHOEA [None]
